FAERS Safety Report 9503291 (Version 2)
Quarter: 2013Q3

REPORT INFORMATION
  Report Type: Spontaneous
  Country: US (occurrence: None)
  Receive Date: 20130225
  Receipt Date: 20130909
  Transmission Date: 20140515
  Serious: Yes (Hospitalization)
  Sender: FDA-Public Use
  Company Number: 367324

PATIENT
  Age: 62 Year
  Sex: Male
  Weight: 74.8 kg

DRUGS (9)
  1. VICTOZA [Suspect]
     Indication: TYPE 2 DIABETES MELLITUS
     Route: 058
     Dates: start: 201106, end: 201204
  2. METOPROLOL (METOPROLOL) [Concomitant]
  3. LOSARTAN (LOSARTAN) [Concomitant]
  4. SIMVASTATIN (SIMVASTATIN [Concomitant]
  5. GEMFIBROZIL (GEMFIBROZIL) [Concomitant]
  6. GLYBURIDE (GLIBENCLAMIDE) [Concomitant]
  7. ASPIRIN (ACETYLSALICYCLIC ACID) [Concomitant]
  8. ALL OTHER THERAPEUTIC PRODUCTS [Concomitant]
  9. RANITIDINE (RANITIDINE) [Concomitant]

REACTIONS (1)
  - Pancreatitis chronic [None]
